FAERS Safety Report 6260408-9 (Version None)
Quarter: 2009Q3

REPORT INFORMATION
  Report Type: 
  Country: None (occurrence: None)
  Receive Date: 20090708
  Receipt Date: 20090629
  Transmission Date: 20100115
  Serious: Yes (Hospitalization)
  Sender: FDA-Public Use
  Company Number: JP-MERCK-0904USA00072

PATIENT
  Age: 75 Year
  Sex: Male

DRUGS (5)
  1. FOSAMAX [Suspect]
     Indication: OSTEOPOROSIS
     Route: 048
     Dates: start: 20090107, end: 20090311
  2. ANPLAG [Suspect]
     Indication: ARTERIOSCLEROSIS OBLITERANS
     Route: 048
     Dates: start: 20060518, end: 20081211
  3. ANPLAG [Suspect]
     Route: 048
     Dates: start: 20090205, end: 20090311
  4. PREDNISOLONE [Concomitant]
     Indication: CHONDRITIS
     Route: 048
     Dates: start: 20081228, end: 20090317
  5. WARFARIN [Concomitant]
     Indication: ARTERIOSCLEROSIS OBLITERANS
     Route: 048
     Dates: start: 20050825

REACTIONS (1)
  - INTERSTITIAL LUNG DISEASE [None]
